FAERS Safety Report 4799751-9 (Version None)
Quarter: 2005Q4

REPORT INFORMATION
  Report Type: 
  Country: None (occurrence: None)
  Receive Date: 20051011
  Receipt Date: 20051011
  Transmission Date: 20060501
  Serious: Yes (Hospitalization)
  Sender: FDA-Public Use
  Company Number: None

PATIENT
  Sex: Female

DRUGS (5)
  1. GEODON [Suspect]
     Dosage: PO   (THERAPY DATES: PRIOR TO ADMISSION)
     Route: 048
  2. VITAMIN E [Concomitant]
  3. LORAZEPAM [Concomitant]
  4. CELEXA [Concomitant]
  5. DEPAKOTE [Concomitant]

REACTIONS (9)
  - APHASIA [None]
  - DROOLING [None]
  - DYSPHAGIA [None]
  - DYSTONIA [None]
  - MOVEMENT DISORDER [None]
  - MUSCLE RIGIDITY [None]
  - NEUROLEPTIC MALIGNANT SYNDROME [None]
  - STUPOR [None]
  - URINARY INCONTINENCE [None]
